FAERS Safety Report 6123955-6 (Version None)
Quarter: 2009Q1

REPORT INFORMATION
  Report Type: 
  Country: None (occurrence: None)
  Receive Date: 20090317
  Receipt Date: 20090311
  Transmission Date: 20090719
  Serious: Yes (Life-Threatening, Hospitalization)
  Sender: FDA-Public Use
  Company Number: 2009JP001452

PATIENT
  Age: 89 Year
  Sex: Male
  Weight: 65.9 kg

DRUGS (11)
  1. VESICARE [Suspect]
     Dosage: 2.5 MG, UID/QD, ORAL
     Route: 048
     Dates: end: 20090206
  2. ETHINYL ESTRADIOL TAB [Suspect]
     Dosage: 1 MG, TID, ORAL
     Route: 048
     Dates: end: 20090206
  3. DIART(AZOSEMIDE) TABLET [Suspect]
     Dosage: 60 MG, UID/QD, ORAL
     Route: 048
     Dates: end: 20090206
  4. CARNACULIN(KALLIDINOGENASE) TABLET [Suspect]
     Dosage: 25 MG, TID, ORAL
     Route: 048
     Dates: end: 20090206
  5. URIEF CAPSULE [Concomitant]
  6. BAYASPIRIN TABLET [Concomitant]
  7. NEUFAN TABLET [Concomitant]
  8. MAGMITT (MAGNESIUM OXIDE) TABLET [Concomitant]
  9. MARZULENE ES (LEVOGLUTAMIDE, AZULENE SODIUM SULFONATE) TABLET [Concomitant]
  10. BERIZYM (LIPASE, CELLULASE, DIASTASE) GRANULE [Concomitant]
  11. MIYA BM (CLOSTRIDIUM BUTYRICUM) GRANULE [Concomitant]

REACTIONS (10)
  - APNOEA [None]
  - BRONCHOPNEUMONIA [None]
  - CONVULSION [None]
  - HEPATIC FUNCTION ABNORMAL [None]
  - HYPOKALAEMIA [None]
  - INFLAMMATION [None]
  - LIVER DISORDER [None]
  - LONG QT SYNDROME [None]
  - LOSS OF CONSCIOUSNESS [None]
  - VENTRICULAR TACHYCARDIA [None]
